FAERS Safety Report 18304392 (Version 1)
Quarter: 2020Q3

REPORT INFORMATION
  Report Type: Spontaneous
  Country: CN (occurrence: CN)
  Receive Date: 20200923
  Receipt Date: 20200923
  Transmission Date: 20201103
  Serious: Yes (Hospitalization, Other)
  Sender: FDA-Public Use
  Company Number: CN-ASTRAZENECA-2020SF18156

PATIENT
  Age: 71 Year
  Sex: Male
  Weight: 69 kg

DRUGS (5)
  1. PEMETREXED. [Concomitant]
     Active Substance: PEMETREXED
     Indication: LUNG NEOPLASM MALIGNANT
     Dosage: ONCE EVERY 21 DAYS,800MG PEMETREXED + 100ML SALINE FOR INTRAVENOUS INJECTION
  2. IRESSA [Suspect]
     Active Substance: GEFITINIB
     Indication: NON-SMALL CELL LUNG CANCER
     Route: 048
  3. IRESSA [Suspect]
     Active Substance: GEFITINIB
     Indication: NON-SMALL CELL LUNG CANCER
     Route: 048
     Dates: start: 20191125, end: 20200828
  4. CONMANA [Concomitant]
     Active Substance: ICOTINIB
  5. CETIRIZINE [Concomitant]
     Active Substance: CETIRIZINE HYDROCHLORIDE
     Indication: HYPERSENSITIVITY

REACTIONS (9)
  - Metastases to lymph nodes [Unknown]
  - Rash [Recovered/Resolved]
  - Metastases to pleura [Unknown]
  - Fatigue [Unknown]
  - Drug ineffective [Unknown]
  - Pruritus [Recovered/Resolved]
  - Drug resistance [Unknown]
  - Dysphagia [Unknown]
  - Eating disorder [Unknown]

NARRATIVE: CASE EVENT DATE: 20200601
